FAERS Safety Report 8059732-9 (Version None)
Quarter: 2012Q1

REPORT INFORMATION
  Report Type: 
  Country: None (occurrence: None)
  Receive Date: 20120120
  Receipt Date: 20120117
  Transmission Date: 20120608
  Serious: Yes (Hospitalization, Other)
  Sender: FDA-Public Use
  Company Number: PHHY2012CA002152

PATIENT
  Sex: Female

DRUGS (1)
  1. ZOLEDRONOC ACID [Suspect]
     Indication: OSTEOPOROSIS
     Dosage: UNK UKN, UNK
     Route: 042
     Dates: start: 20101102

REACTIONS (6)
  - BLOOD PRESSURE ABNORMAL [None]
  - HEART RATE INCREASED [None]
  - FALL [None]
  - CONCOMITANT DISEASE AGGRAVATED [None]
  - DIZZINESS [None]
  - EMPHYSEMA [None]
